FAERS Safety Report 8625297 (Version 3)
Quarter: 2012Q4

REPORT INFORMATION
  Report Type: 
  Country: US (occurrence: US)
  Receive Date: 20120620
  Receipt Date: 20120829
  Transmission Date: 20130627
  Serious: Yes (Other)
  Sender: FDA-Public Use
  Company Number: US-ELI_LILLY_AND_COMPANY-US201206003787

PATIENT
  Sex: Female

DRUGS (1)
  1. FORTEO [Suspect]
     Indication: OSTEOPOROSIS
     Dosage: 20 ug, qd

REACTIONS (7)
  - Blindness unilateral [Unknown]
  - Cataract [Unknown]
  - Hypoacusis [Unknown]
  - Eustachian tube disorder [Unknown]
  - Cardiac failure congestive [Not Recovered/Not Resolved]
  - Asthenia [Unknown]
  - Visual impairment [Unknown]
